FAERS Safety Report 16891027 (Version 1)
Quarter: 2019Q4

REPORT INFORMATION
  Report Type: Spontaneous
  Country: US (occurrence: US)
  Receive Date: 20191006
  Receipt Date: 20191006
  Transmission Date: 20200122
  Serious: Yes (Hospitalization, Other)
  Sender: FDA-Public Use
  Company Number: None

PATIENT
  Age: 26 Year
  Sex: Female
  Weight: 85.5 kg

DRUGS (22)
  1. INVEGA SUSTENNA [Suspect]
     Active Substance: PALIPERIDONE PALMITATE
     Indication: SCHIZOAFFECTIVE DISORDER BIPOLAR TYPE
     Dates: start: 20100301
  2. LATUDA [Suspect]
     Active Substance: LURASIDONE HYDROCHLORIDE
  3. HALOPERIDOL. [Suspect]
     Active Substance: HALOPERIDOL
  4. VITAMIN D [Concomitant]
     Active Substance: VITAMIN D NOS
  5. CICLOPIROX SHAMPOO [Concomitant]
     Active Substance: CICLOPIROX
  6. IBUPROFEN (AS NEEDED FOR HEADACHES) [Concomitant]
  7. INVEGA TRINZA [Suspect]
     Active Substance: PALIPERIDONE PALMITATE
  8. INVEGA SUSTENNA [Suspect]
     Active Substance: PALIPERIDONE PALMITATE
     Indication: COLONOSCOPY
     Dates: start: 20100301
  9. ABILIFY [Suspect]
     Active Substance: ARIPIPRAZOLE
  10. ARIPIPRAZOLE. [Suspect]
     Active Substance: ARIPIPRAZOLE
  11. ZIPRASIDONE. [Suspect]
     Active Substance: ZIPRASIDONE
  12. OMEPRAZOLE. [Concomitant]
     Active Substance: OMEPRAZOLE
  13. MELATONIN (AS NEEDED) [Concomitant]
  14. FLUOCINOLONE [Concomitant]
     Active Substance: FLUOCINOLONE
  15. T-SAL SHAMPOO [Concomitant]
  16. VITAMIN C [Concomitant]
     Active Substance: ASCORBIC ACID
  17. SALICYLIC ACID (FOR NEW ACNE ISSUE) [Concomitant]
  18. UREA 20% CREAM [Concomitant]
  19. INVEGA SUSTENNA [Suspect]
     Active Substance: PALIPERIDONE PALMITATE
     Indication: SCHIZOPHRENIA
     Dates: start: 20100301
  20. SEROQUEL [Suspect]
     Active Substance: QUETIAPINE FUMARATE
  21. FENTANYL. [Suspect]
     Active Substance: FENTANYL
  22. PALIPERIDONE ER (AS NEEDED) [Concomitant]

REACTIONS (17)
  - Menstruation irregular [None]
  - Weight decreased [None]
  - Vision blurred [None]
  - Cough [None]
  - Impaired work ability [None]
  - Dust allergy [None]
  - Sedation [None]
  - Blood prolactin increased [None]
  - Weight increased [None]
  - Drug ineffective [None]
  - Retching [None]
  - Therapeutic response shortened [None]
  - Depression [None]
  - Diarrhoea [None]
  - Product substitution issue [None]
  - Dry mouth [None]
  - Insurance issue [None]

NARRATIVE: CASE EVENT DATE: 20190107
